FAERS Safety Report 7766662-6 (Version None)
Quarter: 2011Q3

REPORT INFORMATION
  Report Type: 
  Country: None (occurrence: None)
  Receive Date: 20110922
  Receipt Date: 20110913
  Transmission Date: 20111222
  Serious: Yes (Other)
  Sender: FDA-Public Use
  Company Number: JP-JNJFOC-20110800073

PATIENT
  Age: 82 Year
  Sex: Male

DRUGS (6)
  1. GALANTAMINE HYDROBROMIDE [Suspect]
     Route: 048
     Dates: start: 20110629, end: 20110724
  2. YOKUKAN-SAN [Concomitant]
     Indication: DEMENTIA
     Route: 048
     Dates: start: 20110502
  3. GALANTAMINE HYDROBROMIDE [Suspect]
     Indication: DEMENTIA ALZHEIMER'S TYPE
     Route: 048
     Dates: start: 20110601, end: 20110628
  4. AMARYL [Concomitant]
     Indication: DIABETES MELLITUS
     Route: 048
     Dates: start: 20091111
  5. FAMOTIDINE [Concomitant]
     Indication: GASTRIC ULCER
     Route: 048
     Dates: start: 20070727
  6. TRICOR [Concomitant]
     Indication: DYSLIPIDAEMIA
     Route: 048
     Dates: start: 20080222

REACTIONS (2)
  - PARKINSONISM [None]
  - NORMAL PRESSURE HYDROCEPHALUS [None]
